FAERS Safety Report 6955837-1 (Version None)
Quarter: 2010Q3

REPORT INFORMATION
  Report Type: 
  Country: None (occurrence: None)
  Receive Date: 20100830
  Receipt Date: 20100823
  Transmission Date: 20110219
  Serious: Yes (Hospitalization)
  Sender: FDA-Public Use
  Company Number: US-ASTRAZENECA-2010SE39520

PATIENT
  Age: 30 Year
  Sex: Female
  Weight: 49.1 kg

DRUGS (4)
  1. SEROQUEL [Suspect]
     Indication: BIPOLAR DISORDER
     Route: 048
     Dates: start: 20100702, end: 20100717
  2. LAMICTAL [Suspect]
     Indication: BIPOLAR DISORDER
     Route: 048
     Dates: start: 20100703
  3. INVESTIGATIONAL DRUG (DOUBLE BLIND) [Suspect]
     Indication: BIPOLAR DISORDER
     Route: 048
     Dates: start: 20100625, end: 20100701
  4. ALBUTEROL [Concomitant]
     Indication: ASTHMA
     Dosage: TWO PUFFS AS REQUIRED
     Route: 048
     Dates: start: 19940101

REACTIONS (5)
  - ACUTE PSYCHOSIS [None]
  - MANIA [None]
  - POOR QUALITY SLEEP [None]
  - SPEECH DISORDER [None]
  - TACHYPHRENIA [None]
